FAERS Safety Report 10687570 (Version 1)
Quarter: 2014Q4

REPORT INFORMATION
  Report Type: Spontaneous
  Country: US (occurrence: None)
  Receive Date: 20141231
  Receipt Date: 20141231
  Transmission Date: 20150529
  Serious: Yes (Life-Threatening, Hospitalization)
  Sender: FDA-Public Use
  Company Number: None

PATIENT
  Age: 55 Year
  Sex: Male

DRUGS (8)
  1. LOSARTAN (COZAAR) [Concomitant]
  2. FEBUXOSTATE [Suspect]
     Active Substance: FEBUXOSTAT
     Indication: GOUT
     Dosage: 1 TABLET, QD, ORAL
     Route: 048
  3. MORPHINE (MSIR) [Concomitant]
  4. ONDANSETRON (ZOFRAN-ODT) [Concomitant]
  5. OXYCODONE (ROXICODONE) [Concomitant]
  6. DEXAMETHASONE PAK [Concomitant]
     Active Substance: DEXAMETHASONE
  7. FEBUXOSTAT (ULORIC) [Concomitant]
  8. FLUOXETIN (PROZAC) [Concomitant]

REACTIONS (1)
  - Myocardial infarction [None]

NARRATIVE: CASE EVENT DATE: 20140612
